FAERS Safety Report 14536525 (Version 1)
Quarter: 2018Q1

REPORT INFORMATION
  Report Type: Spontaneous
  Country: US (occurrence: US)
  Receive Date: 20180215
  Receipt Date: 20180215
  Transmission Date: 20180509
  Serious: Yes (Hospitalization)
  Sender: FDA-Public Use
  Company Number: None

PATIENT
  Age: 56 Year
  Sex: Female
  Weight: 72.6 kg

DRUGS (7)
  1. SYNTHROID [Concomitant]
     Active Substance: LEVOTHYROXINE SODIUM
  2. MIRALAX [Concomitant]
     Active Substance: POLYETHYLENE GLYCOL 3350
  3. LISINOPRIL. [Concomitant]
     Active Substance: LISINOPRIL
  4. MOBIC [Suspect]
     Active Substance: MELOXICAM
     Indication: ARTHRITIS
     Dosage: DATES OF USE - CHRONIC
     Route: 048
  5. MOBIC [Suspect]
     Active Substance: MELOXICAM
     Indication: HORMONE REPLACEMENT THERAPY
     Dosage: DATES OF USE - CHRONIC
     Route: 048
  6. HORMONE REPLACEMENT POT CH [Concomitant]
  7. HCTZ [Concomitant]
     Active Substance: HYDROCHLOROTHIAZIDE

REACTIONS (3)
  - Lower gastrointestinal haemorrhage [None]
  - Diverticulum [None]
  - Colitis ischaemic [None]

NARRATIVE: CASE EVENT DATE: 20170719
